FAERS Safety Report 23578071 (Version 1)
Quarter: 2024Q1

REPORT INFORMATION
  Report Type: Report from Study
  Country: US (occurrence: US)
  Receive Date: 20240229
  Receipt Date: 20240229
  Transmission Date: 20240410
  Serious: Yes (Hospitalization, Other)
  Sender: FDA-Public Use
  Company Number: US-ABBVIE-5649726

PATIENT
  Age: 68 Year
  Sex: Male
  Weight: 100.24 kg

DRUGS (2)
  1. RINVOQ [Suspect]
     Active Substance: UPADACITINIB
     Indication: Psoriasis
     Dosage: STRENGTH: 15 MILLIGRAM
     Route: 048
     Dates: start: 202312
  2. METFORMIN [Concomitant]
     Active Substance: METFORMIN HYDROCHLORIDE
     Indication: Diabetes mellitus

REACTIONS (9)
  - Cerebrovascular accident [Recovering/Resolving]
  - Confusional state [Recovering/Resolving]
  - Loss of consciousness [Recovered/Resolved]
  - Facial paralysis [Not Recovered/Not Resolved]
  - Gait disturbance [Recovered/Resolved]
  - Aphasia [Recovering/Resolving]
  - Alexia [Recovered/Resolved]
  - Headache [Recovered/Resolved]
  - Visual impairment [Not Recovered/Not Resolved]

NARRATIVE: CASE EVENT DATE: 20240216
